FAERS Safety Report 9128869 (Version 1)
Quarter: 2013Q1

REPORT INFORMATION
  Report Type: Spontaneous
  Country: FR (occurrence: FR)
  Receive Date: 20130125
  Receipt Date: 20130125
  Transmission Date: 20140127
  Serious: Yes (Life-Threatening)
  Sender: FDA-Public Use
  Company Number: FR-ASTRAZENECA-2013SE04915

PATIENT
  Age: 42 Year
  Sex: Female

DRUGS (2)
  1. LISINOPRIL/HYDROCHLOROTHIAZIDE 20/25 (WATSON LABORATORIES) [Suspect]
     Route: 048
  2. ETIFOXINE [Suspect]
     Indication: ANXIETY

REACTIONS (1)
  - Hepatitis fulminant [Unknown]
